FAERS Safety Report 6700022-1 (Version None)
Quarter: 2010Q2

REPORT INFORMATION
  Report Type: 
  Country: None (occurrence: None)
  Receive Date: 20100428
  Receipt Date: 20100413
  Transmission Date: 20101027
  Serious: Yes (Other)
  Sender: FDA-Public Use
  Company Number: PHHY2010US16356

PATIENT
  Sex: Female

DRUGS (5)
  1. GLEEVEC [Suspect]
     Dosage: 400 MG DAILY
     Route: 048
     Dates: start: 20100309
  2. DIFLUCAN [Suspect]
  3. DOXYCYCLINE [Concomitant]
  4. ANTIHIST [Concomitant]
  5. BENZONATATE [Concomitant]

REACTIONS (5)
  - ABDOMINAL PAIN [None]
  - INFLUENZA [None]
  - IRRITABLE BOWEL SYNDROME [None]
  - NASOPHARYNGITIS [None]
  - URTICARIA [None]
